FAERS Safety Report 8186872-6 (Version None)
Quarter: 2012Q1

REPORT INFORMATION
  Report Type: 
  Country: None (occurrence: None)
  Receive Date: 20120302
  Receipt Date: 20120228
  Transmission Date: 20120608
  Serious: Yes (Other)
  Sender: FDA-Public Use
  Company Number: 2011HGS-002573

PATIENT
  Age: 38 Year
  Sex: Female
  Weight: 60.2377 kg

DRUGS (15)
  1. ZANAFLEX [Concomitant]
  2. SENOKOT (SENNA ALEXANDRINA FRUIT) [Concomitant]
  3. NORCO (VICODIN) (PARACETAMOL, HYDROCODONE BITARTRATE) [Concomitant]
  4. PLAQUENIL [Concomitant]
  5. POLYETHYLENE GLYCOL [Concomitant]
  6. ACTONEL [Concomitant]
  7. NEURONTIN [Concomitant]
  8. PRILOSEC [Concomitant]
  9. PREDNISONE TAB [Concomitant]
  10. AMBIEN [Concomitant]
  11. IMURAN [Concomitant]
  12. PHENERGAN HCL [Concomitant]
  13. BENLYSTA [Suspect]
     Indication: SYSTEMIC LUPUS ERYTHEMATOSUS
     Dosage: 10 MG/KG, EVERY 2 WEEKS X3 THEN EVERY MONTH, INTRAVENOUS DRIP : 10 MG/KG, INTRAVENOUS DRIP
     Route: 041
     Dates: start: 20110830
  14. BENLYSTA [Suspect]
     Indication: SYSTEMIC LUPUS ERYTHEMATOSUS
     Dosage: 10 MG/KG, EVERY 2 WEEKS X3 THEN EVERY MONTH, INTRAVENOUS DRIP : 10 MG/KG, INTRAVENOUS DRIP
     Route: 041
     Dates: start: 20111011
  15. ZOLOFT [Concomitant]

REACTIONS (10)
  - HEART RATE INCREASED [None]
  - ABDOMINAL PAIN [None]
  - INSOMNIA [None]
  - DIZZINESS [None]
  - ANXIETY [None]
  - DYSPNOEA [None]
  - CHEST DISCOMFORT [None]
  - CHILLS [None]
  - PALPITATIONS [None]
  - PANIC ATTACK [None]
